FAERS Safety Report 7257604-0 (Version None)
Quarter: 2011Q1

REPORT INFORMATION
  Report Type: 
  Country: None (occurrence: None)
  Receive Date: 20110129
  Receipt Date: 20100604
  Transmission Date: 20110831
  Serious: No
  Sender: FDA-Public Use
  Company Number: US-ABBOTT-10P-163-0649420-00

PATIENT
  Sex: Female
  Weight: 50.848 kg

DRUGS (1)
  1. HUMIRA [Suspect]
     Indication: CROHN'S DISEASE
     Route: 058
     Dates: start: 20100405, end: 20100503

REACTIONS (3)
  - ERYTHEMA [None]
  - COUGH [None]
  - WHEEZING [None]
